FAERS Safety Report 7305179-X (Version None)
Quarter: 2011Q1

REPORT INFORMATION
  Report Type: 
  Country: None (occurrence: None)
  Receive Date: 20110222
  Receipt Date: 20110210
  Transmission Date: 20110831
  Serious: Yes (Hospitalization, Other)
  Sender: FDA-Public Use
  Company Number: US-ELI_LILLY_AND_COMPANY-US201102004395

PATIENT
  Sex: Female

DRUGS (3)
  1. EFFIENT [Suspect]
     Indication: ACUTE CORONARY SYNDROME
     Dosage: 10 MG, UNKNOWN
     Dates: start: 20101028, end: 20110203
  2. PREVACID [Concomitant]
     Dosage: 30 MG, UNKNOWN
     Dates: start: 20101028
  3. ATENOLOL [Concomitant]
     Indication: CORONARY ARTERY DISEASE
     Dosage: 50 MG, UNKNOWN
     Dates: start: 20100510

REACTIONS (6)
  - HOSPITALISATION [None]
  - PAIN [None]
  - OEDEMA [None]
  - RED BLOOD CELL SEDIMENTATION RATE INCREASED [None]
  - WHITE BLOOD CELL COUNT INCREASED [None]
  - SKIN ULCER [None]
